FAERS Safety Report 22967312 (Version 8)
Quarter: 2025Q1

REPORT INFORMATION
  Report Type: Spontaneous
  Country: US (occurrence: US)
  Receive Date: 20230921
  Receipt Date: 20250221
  Transmission Date: 20250409
  Serious: Yes (Hospitalization, Other)
  Sender: PFIZER
  Company Number: US-PFIZER INC-2020427406

PATIENT
  Age: 86 Year
  Sex: Male

DRUGS (3)
  1. EUCRISA [Suspect]
     Active Substance: CRISABOROLE
     Dosage: APPLY TWICE DAY TO GENITALIA/APPLY TO LARGE SURFACE AREA TWICE A DAY
     Route: 061
  2. EUCRISA [Suspect]
     Active Substance: CRISABOROLE
     Dosage: APPLY TO AFFECTED AREAS DAILY
     Route: 061
  3. EUCRISA [Suspect]
     Active Substance: CRISABOROLE
     Route: 061

REACTIONS (5)
  - Hypotension [Unknown]
  - Illness [Unknown]
  - Cardiac failure congestive [Unknown]
  - Hypertension [Unknown]
  - Functional gastrointestinal disorder [Unknown]
